FAERS Safety Report 5613546-5 (Version None)
Quarter: 2008Q1

REPORT INFORMATION
  Report Type: 
  Country: None (occurrence: None)
  Receive Date: 20080205
  Receipt Date: 20080122
  Transmission Date: 20080703
  Serious: Yes (Hospitalization)
  Sender: FDA-Public Use
  Company Number: US-ELI_LILLY_AND_COMPANY-US200601000853

PATIENT
  Sex: Female
  Weight: 91.156 kg

DRUGS (8)
  1. ZYPREXA [Suspect]
     Indication: SLEEP DISORDER
     Dosage: 15 MG, EACH EVENING
     Route: 048
     Dates: start: 20021001
  2. ZYPREXA [Suspect]
     Dosage: 15 MG, EACH EVENING
     Route: 048
  3. KLONOPIN [Concomitant]
     Dosage: 0.5 MG, UNK
  4. COGENTIN [Concomitant]
     Dosage: 2 MG, DAILY (1/D)
  5. LITHIUM CARBONATE [Concomitant]
     Dosage: 300 MG, EACH MORNING
  6. LITHIUM CARBONATE [Concomitant]
     Dosage: 600 MG, EACH EVENING
  7. TOPAMAX [Concomitant]
     Dates: start: 20030512
  8. SONATA [Concomitant]
     Dosage: 10 MG, UNK

REACTIONS (6)
  - ANAEMIA [None]
  - BLOOD GLUCOSE DECREASED [None]
  - GLYCOSYLATED HAEMOGLOBIN INCREASED [None]
  - LOSS OF CONSCIOUSNESS [None]
  - TYPE 2 DIABETES MELLITUS [None]
  - WEIGHT DECREASED [None]
